FAERS Safety Report 18183150 (Version 7)
Quarter: 2021Q3

REPORT INFORMATION
  Report Type: Spontaneous
  Country: FR (occurrence: FR)
  Receive Date: 20200821
  Receipt Date: 20210921
  Transmission Date: 20211014
  Serious: Yes (Hospitalization, Disabling, Other)
  Sender: FDA-Public Use
  Company Number: FR-EXELIXIS-CABO-18032163

PATIENT
  Age: 71 Year
  Sex: Male
  Weight: 80 kg

DRUGS (48)
  1. SUTENT [Suspect]
     Active Substance: SUNITINIB MALATE
     Dosage: 37.5 MG, 1X/DAY
     Dates: start: 201705
  2. LEVOTHYROX [Concomitant]
     Active Substance: LEVOTHYROXINE
     Dosage: UNK
     Dates: start: 201708, end: 201709
  3. PLAVIX [Concomitant]
     Active Substance: CLOPIDOGREL BISULFATE
     Indication: THROMBOSIS
     Dosage: UNK
     Dates: start: 201405
  4. INEXIUM [Concomitant]
     Active Substance: ESOMEPRAZOLE
     Indication: GASTRIC ULCER
     Dosage: UNK
     Dates: start: 201501, end: 201508
  5. INEXIUM [Concomitant]
     Active Substance: ESOMEPRAZOLE
     Dosage: UNK
     Dates: start: 201508
  6. CELLCEPT [Concomitant]
     Active Substance: MYCOPHENOLATE MOFETIL\MYCOPHENOLATE MOFETIL HYDROCHLORIDE
     Indication: IMMUNOSUPPRESSION
     Dosage: UNK
     Dates: start: 2004
  7. PARACETAMOL CODEINE [Concomitant]
     Active Substance: ACETAMINOPHEN\CODEINE PHOSPHATE
     Indication: PAIN
     Dosage: UNK
     Dates: start: 201710, end: 201801
  8. LEVOTHYROX [Concomitant]
     Active Substance: LEVOTHYROXINE
     Indication: HYPERTHYROIDISM
     Dosage: UNK
     Dates: start: 201702, end: 201703
  9. CORTANCYL [Concomitant]
     Active Substance: PREDNISONE
     Indication: PAIN
  10. INNOHEP [Concomitant]
     Active Substance: TINZAPARIN SODIUM
     Indication: COAGULOPATHY
     Dosage: UNK
     Dates: start: 202002
  11. SUTENT [Suspect]
     Active Substance: SUNITINIB MALATE
     Dosage: 50 MG, 1X/DAY, 4/6 WEEKS
     Dates: start: 201610, end: 201705
  12. LEVOTHYROX [Concomitant]
     Active Substance: LEVOTHYROXINE
     Dosage: UNK
     Dates: start: 201709
  13. IMODIUM [Concomitant]
     Active Substance: LOPERAMIDE HYDROCHLORIDE
     Indication: DIARRHOEA
     Dosage: UNK
     Dates: start: 201509
  14. EFFEXOR [Concomitant]
     Active Substance: VENLAFAXINE HYDROCHLORIDE
     Indication: DEPRESSION
     Dosage: UNK
     Dates: start: 201405
  15. TAHOR [Concomitant]
     Active Substance: ATORVASTATIN CALCIUM
     Indication: DYSLIPIDAEMIA
     Dosage: UNK
     Dates: start: 201409
  16. INEXIUM [Concomitant]
     Active Substance: ESOMEPRAZOLE
     Indication: GASTRITIS PROPHYLAXIS
     Dosage: UNK
     Dates: start: 201405
  17. GAVISCON [Concomitant]
     Active Substance: ALUMINUM HYDROXIDE\MAGNESIUM CARBONATE
     Indication: GASTRIC ULCER
     Dosage: UNK
     Dates: start: 201508, end: 201701
  18. CABOMETYX [Suspect]
     Active Substance: CABOZANTINIB S-MALATE
     Dosage: 20 MG, 1X/DAY
     Dates: start: 201801, end: 201902
  19. NIVOLUMAB [Suspect]
     Active Substance: NIVOLUMAB
     Indication: PRODUCT USED FOR UNKNOWN INDICATION
     Dosage: 20 MG, 1X/DAY
     Dates: start: 201801
  20. LEXOMIL [Concomitant]
     Active Substance: BROMAZEPAM
     Indication: DEPRESSION
     Dosage: UNK
     Dates: start: 201507
  21. ELIQUIS [Concomitant]
     Active Substance: APIXABAN
     Indication: ANTICOAGULANT THERAPY
     Dosage: UNK
     Dates: start: 201802, end: 202002
  22. SUTENT [Suspect]
     Active Substance: SUNITINIB MALATE
     Dosage: 37 MG, 1X/DAY 2/3 WEEKS
     Dates: start: 201708, end: 201801
  23. ACTISKENAN [Concomitant]
     Active Substance: MORPHINE SULFATE
     Indication: PAIN
     Dosage: UNK
     Dates: start: 201801
  24. ESIDREX [Concomitant]
     Active Substance: HYDROCHLOROTHIAZIDE
     Indication: HYPERTENSION
     Dosage: UNK
     Dates: start: 201507
  25. NOCTAMIDE [Concomitant]
     Active Substance: LORMETAZEPAM
     Indication: INSOMNIA
     Dosage: UNK
     Dates: start: 201507
  26. GELOX [Concomitant]
     Active Substance: ALUMINUM HYDROXIDE\MAGNESIUM HYDROXIDE\MONTMORILLONITE
     Indication: GASTRIC ULCER
     Dosage: UNK
     Dates: start: 201701
  27. KARDEGIC [Concomitant]
     Active Substance: ASPIRIN DL-LYSINE
     Indication: THROMBOSIS PROPHYLAXIS
     Dosage: UNK
     Dates: start: 201405
  28. SKENAN [Concomitant]
     Active Substance: MORPHINE SULFATE
     Indication: PAIN
     Dosage: UNK
     Dates: start: 201604
  29. DUOPLAVIN [Concomitant]
     Active Substance: ASPIRIN\CLOPIDOGREL
     Indication: COAGULOPATHY
     Dosage: UNK
     Dates: start: 201802, end: 201803
  30. AUGMENTIN [Concomitant]
     Active Substance: AMOXICILLIN\CLAVULANATE POTASSIUM
     Indication: ANTIBIOTIC THERAPY
     Dosage: UNK
     Dates: start: 201805, end: 201805
  31. LEVOTHYROX [Concomitant]
     Active Substance: LEVOTHYROXINE
     Dosage: UNK
     Dates: start: 201703, end: 201705
  32. TIORFAN [Concomitant]
     Active Substance: RACECADOTRIL
     Indication: DIARRHOEA
     Dosage: UNK
     Dates: start: 201509
  33. NOVORAPID [Concomitant]
     Active Substance: INSULIN ASPART
     Indication: DIABETES MELLITUS
     Dosage: UNK
     Dates: start: 2004
  34. LANTUS [Concomitant]
     Active Substance: INSULIN GLARGINE
     Indication: DIABETES MELLITUS
     Dosage: UNK
     Dates: start: 2004
  35. OGASTORO [Concomitant]
     Active Substance: LANSOPRAZOLE
     Indication: GASTROOESOPHAGEAL REFLUX DISEASE
     Dosage: UNK
     Dates: start: 201701
  36. CORTANCYL [Concomitant]
     Active Substance: PREDNISONE
     Indication: INFLAMMATION
     Dosage: UNK
     Dates: start: 201801
  37. DUOPLAVIN [Concomitant]
     Active Substance: ASPIRIN\CLOPIDOGREL
     Indication: CORONARY ARTERY DISEASE
  38. ULTRA LEVURE [Concomitant]
     Active Substance: SACCHAROMYCES CEREVISIAE
     Indication: GASTROINTESTINAL DISORDER
     Dosage: UNK
     Dates: start: 201805, end: 201805
  39. XATRAL [Concomitant]
     Active Substance: ALFUZOSIN
     Indication: OLIGURIA
     Dosage: UNK
     Dates: start: 201702, end: 201703
  40. MOTILIUM [Concomitant]
     Active Substance: DOMPERIDONE
     Indication: NAUSEA
     Dosage: UNK
     Dates: start: 201405
  41. CABOMETYX [Suspect]
     Active Substance: CABOZANTINIB S-MALATE
     Indication: NEOPLASM MALIGNANT
     Dosage: 40 MG, QD
     Dates: start: 201801, end: 201801
  42. SUTENT [Suspect]
     Active Substance: SUNITINIB MALATE
     Indication: PRODUCT USED FOR UNKNOWN INDICATION
     Dosage: 50 MG, DAILY (4 WEEKS ON, 2 WEEKS OFF)
     Dates: start: 201507, end: 201511
  43. COZAAR [Concomitant]
     Active Substance: LOSARTAN POTASSIUM
     Indication: HYPERTENSION
     Dosage: UNK
     Dates: start: 201405, end: 201604
  44. LEVOTHYROX [Concomitant]
     Active Substance: LEVOTHYROXINE
     Dosage: UNK
     Dates: start: 201705, end: 201708
  45. AMLOR [Concomitant]
     Active Substance: AMLODIPINE BESYLATE
     Indication: HYPERTENSION
     Dosage: UNK
     Dates: start: 201409
  46. PROGRAF [Concomitant]
     Active Substance: TACROLIMUS
     Indication: IMMUNOSUPPRESSION
     Dosage: UNK
     Dates: start: 2004
  47. NATISPRAY [Concomitant]
     Active Substance: NITROGLYCERIN
     Indication: ANGINA PECTORIS
     Dosage: UNK
     Dates: start: 201508
  48. NATISPRAY [Concomitant]
     Active Substance: NITROGLYCERIN
     Indication: PAIN

REACTIONS (20)
  - Peripheral ischaemia [Recovered/Resolved]
  - Blindness unilateral [Not Recovered/Not Resolved]
  - Necrosis [Recovered/Resolved with Sequelae]
  - Gangrene [Recovered/Resolved with Sequelae]
  - Peripheral ischaemia [Not Recovered/Not Resolved]
  - Hypertension [Recovered/Resolved]
  - Spinal osteoarthritis [Recovered/Resolved]
  - Confusional state [Not Recovered/Not Resolved]
  - Asthenia [Recovered/Resolved]
  - Diarrhoea [Recovered/Resolved]
  - Coronary artery disease [Recovered/Resolved]
  - Peripheral ischaemia [Recovered/Resolved with Sequelae]
  - Haemoptysis [Recovered/Resolved]
  - Chest pain [Recovered/Resolved]
  - Angina pectoris [Recovered/Resolved]
  - Oesophagitis [Recovered/Resolved]
  - Necrosis [Recovered/Resolved with Sequelae]
  - Gangrene [Recovered/Resolved]
  - Intervertebral disc degeneration [Recovered/Resolved]
  - Mucosal inflammation [Recovered/Resolved]

NARRATIVE: CASE EVENT DATE: 20150724
